FAERS Safety Report 9633355 (Version 1)
Quarter: 2013Q4

REPORT INFORMATION
  Report Type: Spontaneous
  Country: FR (occurrence: FR)
  Receive Date: 20131021
  Receipt Date: 20131021
  Transmission Date: 20140711
  Serious: Yes (Life-Threatening)
  Sender: FDA-Public Use
  Company Number: FR-BAYER-2013-124678

PATIENT
  Age: 67 Year
  Sex: Male

DRUGS (1)
  1. LEVITRA [Suspect]
     Dosage: 1 DF, QD
     Route: 048
     Dates: start: 20130729, end: 20130729

REACTIONS (1)
  - Cerebral haemorrhage [Not Recovered/Not Resolved]
